FAERS Safety Report 8917242 (Version 1)
Quarter: 2012Q4

REPORT INFORMATION
  Report Type: Report from Study
  Country: UG (occurrence: UG)
  Receive Date: 20121119
  Receipt Date: 20121119
  Transmission Date: 20130627
  Serious: Yes (Other)
  Sender: FDA-Public Use
  Company Number: UG-BRISTOL-MYERS SQUIBB COMPANY-17142613

PATIENT
  Age: 43 Year
  Sex: Male
  Weight: 53 kg

DRUGS (2)
  1. STOCRIN CAPS [Suspect]
     Indication: HIV INFECTION
     Route: 048
     Dates: start: 20120306
  2. TRUVADA [Suspect]
     Indication: HIV INFECTION
     Route: 048
     Dates: start: 20120306

REACTIONS (1)
  - Petit mal epilepsy [Not Recovered/Not Resolved]
